FAERS Safety Report 5237123-3 (Version None)
Quarter: 2007Q1

REPORT INFORMATION
  Report Type: 
  Country: None (occurrence: None)
  Receive Date: 20070213
  Receipt Date: 20070209
  Transmission Date: 20070707
  Serious: Yes (Other)
  Sender: FDA-Public Use
  Company Number: US-GLAXOSMITHKLINE-A0623110A

PATIENT
  Sex: Female

DRUGS (1)
  1. ADVAIR DISKUS 100/50 [Suspect]
     Indication: ASTHMA
     Route: 055
     Dates: start: 20040401

REACTIONS (5)
  - ANXIETY [None]
  - ASTHMA [None]
  - DYSPHONIA [None]
  - DYSPNOEA [None]
  - RESPIRATORY MONILIASIS [None]
